FAERS Safety Report 7486039-0 (Version None)
Quarter: 2011Q2

REPORT INFORMATION
  Report Type: 
  Country: None (occurrence: None)
  Receive Date: 20110517
  Receipt Date: 20110510
  Transmission Date: 20111010
  Serious: Yes (Other)
  Sender: FDA-Public Use
  Company Number: ES-PFIZER INC-2011099426

PATIENT
  Sex: Male

DRUGS (1)
  1. ECALTA [Suspect]
     Dosage: UNK
     Dates: start: 20110421

REACTIONS (5)
  - INJECTION SITE PAIN [None]
  - CHOKING SENSATION [None]
  - VOMITING [None]
  - NAUSEA [None]
  - HYPERSENSITIVITY [None]
